FAERS Safety Report 5662050-7 (Version None)
Quarter: 2008Q1

REPORT INFORMATION
  Report Type: 
  Country: None (occurrence: None)
  Receive Date: 20080312
  Receipt Date: 20080303
  Transmission Date: 20080703
  Serious: Yes (Other)
  Sender: FDA-Public Use
  Company Number: GR-ELI_LILLY_AND_COMPANY-GR200711000477

PATIENT
  Age: 33 Year
  Sex: Female
  Weight: 75 kg

DRUGS (2)
  1. DULOXETINE HYDROCHLORIDE [Suspect]
     Indication: MAJOR DEPRESSION
     Dosage: 60 MG, DAILY (1/D)
     Route: 048
     Dates: start: 20070501, end: 20071001
  2. PENFLURIDOL [Concomitant]
     Indication: MAJOR DEPRESSION
     Dosage: 20 MG, WEEKLY (1/W)
     Route: 048
     Dates: start: 19980101

REACTIONS (1)
  - VENTRICULAR EXTRASYSTOLES [None]
